FAERS Safety Report 6790970-9 (Version None)
Quarter: 2010Q2

REPORT INFORMATION
  Report Type: 
  Country: None (occurrence: None)
  Receive Date: 20100624
  Receipt Date: 20100621
  Transmission Date: 20101027
  Serious: Yes (Hospitalization)
  Sender: FDA-Public Use
  Company Number: FR-MERCK-1006FRA00077

PATIENT
  Age: 95 Year
  Sex: Female

DRUGS (5)
  1. MODURETIC 5-50 [Suspect]
     Indication: POLYURIA
     Route: 048
  2. FLUINDIONE [Concomitant]
     Route: 048
  3. NICARDIPINE HYDROCHLORIDE [Suspect]
     Route: 048
     Dates: end: 20090228
  4. FLECAINIDE ACETATE [Concomitant]
     Indication: ARRHYTHMIA
     Route: 048
  5. AMOXICILLIN [Concomitant]
     Indication: COUGH
     Route: 065
     Dates: start: 20090227

REACTIONS (2)
  - DRUG INTERACTION [None]
  - FALL [None]
